FAERS Safety Report 21910500 (Version 1)
Quarter: 2023Q1

REPORT INFORMATION
  Report Type: Spontaneous
  Country: IR (occurrence: IR)
  Receive Date: 20230125
  Receipt Date: 20230125
  Transmission Date: 20230418
  Serious: Yes (Other)
  Sender: FDA-Public Use
  Company Number: IR-ASTELLAS PHARMA EUROPE B.V.-2023US001632

PATIENT
  Age: 68 Year
  Sex: Male
  Weight: 90 kg

DRUGS (3)
  1. TAMSULOSIN HYDROCHLORIDE [Suspect]
     Active Substance: TAMSULOSIN HYDROCHLORIDE
     Indication: Benign prostatic hyperplasia
     Dosage: 0.4 MG, QD
     Route: 048
     Dates: start: 202209, end: 20230117
  2. CLOPIDOGREL [Concomitant]
     Active Substance: CLOPIDOGREL BISULFATE
     Indication: Product used for unknown indication
     Dosage: UNK UNK, ONCE DAILY
     Route: 048
     Dates: start: 2011
  3. MITOMYCIN [Concomitant]
     Active Substance: MITOMYCIN
     Indication: Bladder cancer
     Dosage: UNK UNK, UNKNOWN FREQ.
     Route: 065

REACTIONS (3)
  - Dyspnoea [Not Recovered/Not Resolved]
  - Dizziness [Not Recovered/Not Resolved]
  - Vision blurred [Not Recovered/Not Resolved]

NARRATIVE: CASE EVENT DATE: 20221201
